FAERS Safety Report 14319365 (Version 5)
Quarter: 2018Q3

REPORT INFORMATION
  Report Type: Report from Study
  Country: US (occurrence: US)
  Receive Date: 20171222
  Receipt Date: 20180830
  Transmission Date: 20181010
  Serious: Yes (Other)
  Sender: FDA-Public Use
  Company Number: PHEH2017US041533

PATIENT
  Age: 70 Year
  Sex: Male

DRUGS (2)
  1. VOTRIENT [Suspect]
     Active Substance: PAZOPANIB HYDROCHLORIDE
     Dosage: 800 MG, QD
     Route: 048
  2. VOTRIENT [Suspect]
     Active Substance: PAZOPANIB HYDROCHLORIDE
     Indication: RENAL CANCER
     Dosage: 800 MG, QD
     Route: 048
     Dates: start: 20170609

REACTIONS (11)
  - Metastases to lung [Recovering/Resolving]
  - Rash pruritic [Recovered/Resolved]
  - Rash [Recovering/Resolving]
  - Infection [Unknown]
  - Feeding disorder [Unknown]
  - Diarrhoea [Unknown]
  - Malaise [Unknown]
  - Skin discolouration [Unknown]
  - Pruritus [Unknown]
  - Furuncle [Unknown]
  - Hair colour changes [Unknown]

NARRATIVE: CASE EVENT DATE: 20171210
